FAERS Safety Report 9100586 (Version 2)
Quarter: 2013Q4

REPORT INFORMATION
  Report Type: Spontaneous
  Country: US (occurrence: US)
  Receive Date: 20130215
  Receipt Date: 20131115
  Transmission Date: 20140711
  Serious: Yes (Hospitalization, Disabling, Other)
  Sender: FDA-Public Use
  Company Number: US-009507513-1302USA006671

PATIENT
  Sex: Female
  Weight: 99.77 kg

DRUGS (3)
  1. NUVARING [Suspect]
     Indication: CONTRACEPTION
     Dosage: UNK
     Route: 067
     Dates: start: 200604
  2. NUVARING [Suspect]
     Indication: ENDOMETRIOSIS
     Dosage: UNK
     Route: 067
     Dates: start: 20051112
  3. ESTROGENS (UNSPECIFIED) [Suspect]
     Indication: ENDOMETRIOSIS

REACTIONS (7)
  - Basal cell carcinoma [Unknown]
  - Pulmonary embolism [Unknown]
  - Off label use [Unknown]
  - Migraine [Unknown]
  - Klebsiella infection [Recovered/Resolved]
  - Pneumonia [Unknown]
  - Hysterectomy [Unknown]
